FAERS Safety Report 9657744 (Version 1)
Quarter: 2013Q4

REPORT INFORMATION
  Report Type: Report from Study
  Country: DE (occurrence: DE)
  Receive Date: 20131030
  Receipt Date: 20131030
  Transmission Date: 20140711
  Serious: Yes (Other)
  Sender: FDA-Public Use
  Company Number: DE-SA-2013SA108198

PATIENT
  Age: 73 Year
  Sex: Male
  Weight: 85 kg

DRUGS (3)
  1. MULTAQ [Suspect]
     Indication: ATRIAL FIBRILLATION
     Route: 048
     Dates: start: 20120612, end: 20121105
  2. VIT K ANTAGONISTS [Concomitant]
     Indication: THROMBOSIS PROPHYLAXIS
     Dates: start: 20110207
  3. SIMVASTATIN [Concomitant]

REACTIONS (2)
  - Atrial fibrillation [Unknown]
  - Left ventricular dysfunction [Unknown]
